FAERS Safety Report 4345987-0 (Version None)
Quarter: 2004Q2

REPORT INFORMATION
  Report Type: 
  Country: None (occurrence: None)
  Receive Date: 20040423
  Receipt Date: 20040413
  Transmission Date: 20050107
  Serious: Yes (Other)
  Sender: FDA-Public Use
  Company Number: 2004024952

PATIENT
  Sex: Female

DRUGS (1)
  1. NATURAL CITRUS LISTERINE (EUCALYPTOL, MENTHOL, METHYL SALICYLATE, THYM [Suspect]
     Indication: INTENTIONAL OVERDOSE
     Dosage: FOUR 500 ML BOTTLES IN ONE DAY, ORAL
     Route: 048
     Dates: start: 20040413, end: 20040413

REACTIONS (4)
  - EYE MOVEMENT DISORDER [None]
  - LOSS OF CONSCIOUSNESS [None]
  - MEDICATION ERROR [None]
  - SALIVARY HYPERSECRETION [None]
